FAERS Safety Report 9050620 (Version 1)
Quarter: 2013Q1

REPORT INFORMATION
  Report Type: Spontaneous
  Country: ES (occurrence: ES)
  Receive Date: 20130205
  Receipt Date: 20130205
  Transmission Date: 20140127
  Serious: Yes (Life-Threatening, Hospitalization, Other)
  Sender: FDA-Public Use
  Company Number: ES-PFIZER INC-2013043244

PATIENT
  Age: 77 Year
  Sex: Female

DRUGS (6)
  1. CARDURAN NEO [Suspect]
     Indication: HYPERTENSION
     Dosage: 4 MG/DAY
     Route: 048
     Dates: start: 20100923, end: 20101019
  2. COROPRES [Interacting]
     Indication: ATRIAL FIBRILLATION
     Dosage: 25 MG,/DAY
     Route: 048
     Dates: end: 20101019
  3. TRANGOREX [Interacting]
     Indication: ATRIAL FIBRILLATION
     Dosage: 600 MG/DAY
     Route: 048
     Dates: end: 20121019
  4. ALLOPURINOL [Concomitant]
     Indication: HYPERURICAEMIA
     Dosage: 100 MG/DAY
     Route: 048
  5. ACETYLSALICYLIC ACID [Concomitant]
     Indication: CARDIOVASCULAR EVENT PROPHYLAXIS
     Dosage: 100 MG/DAY
     Route: 048
  6. SEGURIL [Concomitant]
     Dosage: 40 MG/DAY
     Route: 048
     Dates: start: 200609

REACTIONS (6)
  - Drug interaction [Recovered/Resolved with Sequelae]
  - Nodal rhythm [Recovered/Resolved with Sequelae]
  - Anuria [Unknown]
  - Urinary tract infection [Unknown]
  - Dyspnoea [Unknown]
  - Asthenia [Unknown]
